FAERS Safety Report 17968927 (Version 1)
Quarter: 2020Q3

REPORT INFORMATION
  Report Type: Spontaneous
  Country: US (occurrence: US)
  Receive Date: 20200701
  Receipt Date: 20200701
  Transmission Date: 20201103
  Serious: No
  Sender: FDA-Public Use
  Company Number: US-PFM-2019-06306

PATIENT
  Age: 15 Month
  Sex: Female

DRUGS (1)
  1. HEMANGEOL [Suspect]
     Active Substance: PROPRANOLOL HYDROCHLORIDE
     Indication: INFANTILE HAEMANGIOMA
     Dosage: 1.9 ML, TID (3/DAY)
     Route: 048
     Dates: start: 20190412

REACTIONS (4)
  - Off label use [Unknown]
  - Weight gain poor [Unknown]
  - Inappropriate schedule of product administration [Unknown]
  - Product administered to patient of inappropriate age [Unknown]

NARRATIVE: CASE EVENT DATE: 20190412
